FAERS Safety Report 24231072 (Version 1)
Quarter: 2024Q3

REPORT INFORMATION
  Report Type: Spontaneous
  Country: US (occurrence: US)
  Receive Date: 20240821
  Receipt Date: 20240821
  Transmission Date: 20241017
  Serious: No
  Sender: GLENMARK
  Company Number: US-GLENMARK PHARMACEUTICALS-2024GMK090591

PATIENT

DRUGS (1)
  1. DROSPIRENONE\ETHINYL ESTRADIOL [Suspect]
     Active Substance: DROSPIRENONE\ETHINYL ESTRADIOL
     Indication: Product used for unknown indication
     Dosage: UNK (STARTED TAKING IN THE MIDDLE OF HER MENSTRUAL CYCLE)
     Route: 065
     Dates: start: 2024

REACTIONS (2)
  - Menstruation delayed [Unknown]
  - Inappropriate schedule of product administration [Unknown]
